FAERS Safety Report 14533815 (Version 2)
Quarter: 2018Q1

REPORT INFORMATION
  Report Type: Report from Study
  Country: ZA (occurrence: ZA)
  Receive Date: 20180215
  Receipt Date: 20180216
  Transmission Date: 20180509
  Serious: Yes (Death, Life-Threatening, Hospitalization, Other)
  Sender: FDA-Public Use
  Company Number: ZA-AMGEN-ZAFSL2018021279

PATIENT
  Sex: Male

DRUGS (6)
  1. SIMVOTIN [Concomitant]
  2. BILOCOR [Concomitant]
     Active Substance: BISOPROLOL FUMARATE
  3. ARANESP [Suspect]
     Active Substance: DARBEPOETIN ALFA
     Indication: CHRONIC KIDNEY DISEASE
     Dosage: 60 MUG, Q2WK
     Route: 058
     Dates: end: 201802
  4. PURICOS [Concomitant]
     Active Substance: ALLOPURINOL
  5. RAMIPRIL. [Concomitant]
     Active Substance: RAMIPRIL
  6. COSMOFER [Concomitant]
     Active Substance: IRON DEXTRAN

REACTIONS (2)
  - Sepsis [Fatal]
  - Acute myocardial infarction [Unknown]
